FAERS Safety Report 4928420-7 (Version None)
Quarter: 2006Q1

REPORT INFORMATION
  Report Type: 
  Country: None (occurrence: None)
  Receive Date: 20060223
  Receipt Date: 20060207
  Transmission Date: 20060701
  Serious: Yes (Other)
  Sender: FDA-Public Use
  Company Number: TRP_0643_2005

PATIENT
  Age: 47 Year
  Sex: Male
  Weight: 97.0698 kg

DRUGS (2)
  1. RIBASPHERE/RIBAVIRIN/THREE RIVERS PHARMA/200MG [Suspect]
     Indication: HEPATITIS C
     Dosage: 1200 MG QDAY PO
     Route: 048
     Dates: start: 20050902
  2. PEG-INTRON [Suspect]
     Indication: HEPATITIS C
     Dosage: 150 MCG QWK SC
     Route: 058
     Dates: start: 20050902

REACTIONS (1)
  - INGUINAL HERNIA REPAIR [None]
